FAERS Safety Report 13547695 (Version 1)
Quarter: 2017Q2

REPORT INFORMATION
  Report Type: Spontaneous
  Country: IT (occurrence: IT)
  Receive Date: 20170515
  Receipt Date: 20170515
  Transmission Date: 20170830
  Serious: Yes (Life-Threatening, Hospitalization, Other)
  Sender: FDA-Public Use
  Company Number: IT-MACLEODS PHARMACEUTICALS US LTD-MAC2017004981

PATIENT

DRUGS (2)
  1. QUETIAPINE 25MG TABLET ^AMEL^ [Suspect]
     Active Substance: QUETIAPINE
     Indication: PRODUCT USED FOR UNKNOWN INDICATION
     Dosage: 50 MG, QD
     Route: 048
  2. QUETIAPINE 25MG TABLET ^AMEL^ [Suspect]
     Active Substance: QUETIAPINE
     Dosage: 1.4 G TOTAL (56 TABLET AT ONE TIME)
     Route: 048

REACTIONS (5)
  - Toxicity to various agents [Recovering/Resolving]
  - Intentional overdose [Recovering/Resolving]
  - Areflexia [Recovering/Resolving]
  - Coma [Recovering/Resolving]
  - Loss of consciousness [Recovering/Resolving]
